FAERS Safety Report 21279888 (Version 2)
Quarter: 2022Q3

REPORT INFORMATION
  Report Type: Report from Study
  Country: US (occurrence: US)
  Receive Date: 20220901
  Receipt Date: 20220926
  Transmission Date: 20221026
  Serious: Yes (Other)
  Sender: FDA-Public Use
  Company Number: US-BRISTOL-MYERS SQUIBB COMPANY-2022-091091

PATIENT
  Age: 62 Year
  Sex: Female
  Weight: 102.5 kg

DRUGS (2)
  1. REVLIMID [Suspect]
     Active Substance: LENALIDOMIDE
     Indication: Plasma cell myeloma
     Dosage: DAILY FOR 14 DAYS THEN 7 DAYS OFF?TAKE 1 CAPSULE DAILY FOR 14 DAYS
     Route: 048
     Dates: start: 202207
  2. REVLIMID [Suspect]
     Active Substance: LENALIDOMIDE
     Route: 065

REACTIONS (6)
  - Renal disorder [Unknown]
  - Precancerous condition [Unknown]
  - Dizziness [Unknown]
  - Pyrexia [Unknown]
  - Fatigue [Unknown]
  - Off label use [Unknown]
